FAERS Safety Report 9677250 (Version 1)
Quarter: 2013Q4

REPORT INFORMATION
  Report Type: Spontaneous
  Country: US (occurrence: US)
  Receive Date: 20131108
  Receipt Date: 20131108
  Transmission Date: 20140711
  Serious: Yes (Death)
  Sender: FDA-Public Use
  Company Number: US-ACCORD-020234

PATIENT
  Sex: 0

DRUGS (1)
  1. DOCETAXEL [Suspect]
     Indication: BREAST CANCER
     Dosage: THREE CYCLES OF?DOCETAXEL

REACTIONS (2)
  - Alveolitis allergic [Fatal]
  - Respiratory failure [Fatal]
